FAERS Safety Report 10714127 (Version 2)
Quarter: 2015Q1

REPORT INFORMATION
  Report Type: Spontaneous
  Country: BG (occurrence: BG)
  Receive Date: 20150115
  Receipt Date: 20150120
  Transmission Date: 20150721
  Serious: Yes (Death)
  Sender: FDA-Public Use
  Company Number: BG-PFIZER INC-2015016319

PATIENT
  Sex: Male

DRUGS (2)
  1. TORISEL [Suspect]
     Active Substance: TEMSIROLIMUS
     Indication: GLIOBLASTOMA
     Dosage: UNK
  2. AVASTIN [Concomitant]
     Active Substance: BEVACIZUMAB
     Dosage: UNK

REACTIONS (5)
  - Pneumonitis [Not Recovered/Not Resolved]
  - Disease progression [Fatal]
  - Glioblastoma [Fatal]
  - Product use issue [Unknown]
  - Thrombosis [Not Recovered/Not Resolved]
